FAERS Safety Report 4885120-X (Version None)
Quarter: 2006Q1

REPORT INFORMATION
  Report Type: 
  Country: None (occurrence: None)
  Receive Date: 20060119
  Receipt Date: 20060105
  Transmission Date: 20060701
  Serious: Yes (Other)
  Sender: FDA-Public Use
  Company Number: HQWYE236706JAN06

PATIENT
  Sex: Male

DRUGS (2)
  1. ENBREL [Suspect]
     Indication: RHEUMATOID ARTHRITIS
     Route: 058
     Dates: start: 20050617, end: 20051201
  2. METHOTREXATE [Suspect]

REACTIONS (2)
  - LABORATORY TEST ABNORMAL [None]
  - RESPIRATORY DISORDER [None]
